FAERS Safety Report 16196814 (Version 2)
Quarter: 2020Q2

REPORT INFORMATION
  Report Type: Spontaneous
  Country: US (occurrence: US)
  Receive Date: 20190415
  Receipt Date: 20200518
  Transmission Date: 20200713
  Serious: Yes (Hospitalization)
  Sender: FDA-Public Use
  Company Number: US-JNJFOC-20170725783

PATIENT
  Sex: Male

DRUGS (2)
  1. LEVAQUIN [Suspect]
     Active Substance: LEVOFLOXACIN
     Indication: RESPIRATORY TRACT INFECTION
     Route: 048
  2. LEVOFLOXACIN. [Suspect]
     Active Substance: LEVOFLOXACIN
     Route: 048

REACTIONS (1)
  - Neuropathy peripheral [Unknown]

NARRATIVE: CASE EVENT DATE: 2011
